FAERS Safety Report 7420317-6 (Version None)
Quarter: 2011Q2

REPORT INFORMATION
  Report Type: 
  Country: None (occurrence: None)
  Receive Date: 20110418
  Receipt Date: 20110407
  Transmission Date: 20111010
  Serious: Yes (Other)
  Sender: FDA-Public Use
  Company Number: PHHY2011US26048

PATIENT
  Sex: Female

DRUGS (6)
  1. ACETAMINOPHEN [Concomitant]
     Indication: PAIN
     Dosage: UNK UKN, PRN
  2. LEVOTHYROXINE SODIUM [Concomitant]
     Indication: HYPOTHYROIDISM
     Dosage: UNK UKN, UNK
  3. GILENYA [Suspect]
     Indication: MULTIPLE SCLEROSIS
     Dosage: 0.5 MG, QD
     Route: 048
     Dates: start: 20110321
  4. MIGRATINE [Concomitant]
     Indication: HEADACHE
     Dosage: UNK UKN, UNK
  5. AMITRIPTYLINE [Concomitant]
     Indication: MUSCLE SPASMS
     Dosage: UNK UKN, UNK
  6. AMBIEN [Concomitant]
     Indication: INSOMNIA
     Dosage: 10 MG, UNK

REACTIONS (10)
  - NAUSEA [None]
  - VISION BLURRED [None]
  - BLADDER SPASM [None]
  - MULTIPLE SCLEROSIS RELAPSE [None]
  - ASTHENIA [None]
  - CHILLS [None]
  - FEELING HOT [None]
  - ABNORMAL SENSATION IN EYE [None]
  - URINARY TRACT INFECTION [None]
  - PYREXIA [None]
